FAERS Safety Report 5315627-2 (Version None)
Quarter: 2007Q2

REPORT INFORMATION
  Report Type: 
  Country: None (occurrence: None)
  Receive Date: 20070503
  Receipt Date: 20070419
  Transmission Date: 20071010
  Serious: Yes (Other)
  Sender: FDA-Public Use
  Company Number: CA-ELI_LILLY_AND_COMPANY-CA200704004123

PATIENT
  Age: 88 Year
  Sex: Female

DRUGS (8)
  1. FORTEO [Suspect]
     Indication: OSTEOPOROSIS
     Dosage: 20 UG, DAILY (1/D)
     Route: 058
     Dates: start: 20070113, end: 20070416
  2. MICARDIS [Concomitant]
  3. HYDROCHLOROTHIAZIDE [Concomitant]
  4. MULTI-VITAMIN [Concomitant]
  5. CALCIUM CHLORIDE [Concomitant]
  6. VITAMIN D [Concomitant]
  7. VITAMIN E [Concomitant]
  8. VITAMIN B-12 [Concomitant]

REACTIONS (5)
  - ABDOMINAL DISTENSION [None]
  - ASTHENIA [None]
  - COLON CANCER [None]
  - DECREASED APPETITE [None]
  - LETHARGY [None]
